FAERS Safety Report 19446227 (Version 4)
Quarter: 2021Q3

REPORT INFORMATION
  Report Type: Report from Study
  Country: US (occurrence: US)
  Receive Date: 20210622
  Receipt Date: 20210925
  Transmission Date: 20211014
  Serious: No
  Sender: FDA-Public Use
  Company Number: NVSC2021US132578

PATIENT
  Sex: Female

DRUGS (1)
  1. KESIMPTA [Suspect]
     Active Substance: OFATUMUMAB
     Indication: PRODUCT USED FOR UNKNOWN INDICATION
     Dosage: UNK
     Route: 065

REACTIONS (7)
  - Oropharyngeal pain [Unknown]
  - Herpes zoster [Unknown]
  - Cough [Unknown]
  - Fatigue [Unknown]
  - Muscular weakness [Unknown]
  - Muscle fatigue [Unknown]
  - Oral mucosal blistering [Unknown]
